FAERS Safety Report 5164379-8 (Version None)
Quarter: 2006Q4

REPORT INFORMATION
  Report Type: 
  Country: None (occurrence: None)
  Receive Date: 20061205
  Receipt Date: 20061122
  Transmission Date: 20070319
  Serious: Yes (Hospitalization)
  Sender: FDA-Public Use
  Company Number: JP-NOVOPROD-258917

PATIENT
  Age: 65 Year
  Sex: Male
  Weight: 48 kg

DRUGS (7)
  1. NOVORAPID 30 MIX CHU FLEXPEN [Suspect]
     Indication: INSULIN-REQUIRING TYPE II DIABETES MELLITUS
     Dosage: 12 IU, QD
     Route: 058
     Dates: start: 20041101, end: 20050201
  2. NOVOLIN R [Suspect]
     Indication: INSULIN-REQUIRING TYPE II DIABETES MELLITUS
     Route: 058
  3. ADALAT [Concomitant]
     Indication: HYPERTENSION
     Dosage: 20 MG, QD
     Route: 048
     Dates: start: 20030901
  4. ACECOL [Concomitant]
     Dosage: 2 MG, QD
     Route: 048
     Dates: start: 20030901
  5. ASPIRIN [Concomitant]
     Dosage: 100 MG, QD
     Route: 048
     Dates: start: 20030901
  6. LANSOPRAZOLE [Concomitant]
     Dosage: 30 MG, QD
     Route: 048
     Dates: start: 20030901
  7. EURODIN [Concomitant]
     Dosage: 2 MG, UNK
     Route: 048
     Dates: start: 20030901

REACTIONS (6)
  - ANTI-INSULIN ANTIBODY POSITIVE [None]
  - BLOOD GLUCOSE FLUCTUATION [None]
  - BLOOD IMMUNOGLOBULIN E INCREASED [None]
  - HYPERGLYCAEMIA [None]
  - HYPOGLYCAEMIA [None]
  - INJECTION SITE RASH [None]
